FAERS Safety Report 9779130 (Version 1)
Quarter: 2013Q4

REPORT INFORMATION
  Report Type: Spontaneous
  Country: DE (occurrence: DE)
  Receive Date: 20131223
  Receipt Date: 20131223
  Transmission Date: 20140711
  Serious: Yes (Life-Threatening, Hospitalization, Congenital Anomaly)
  Sender: FDA-Public Use
  Company Number: DE-TEVA-451817GER

PATIENT
  Age: 1 Day
  Sex: Female
  Weight: 3.28 kg

DRUGS (5)
  1. CITALOPRAM [Suspect]
     Route: 064
  2. PARACETAMOL [Concomitant]
     Route: 064
  3. FOLIO [Concomitant]
     Route: 064
  4. AMITRIPTYLIN [Concomitant]
     Route: 064
  5. DIAZEPAM [Concomitant]
     Route: 064

REACTIONS (3)
  - Ventricular septal defect [Not Recovered/Not Resolved]
  - Truncus arteriosus persistent [Recovered/Resolved with Sequelae]
  - Atrial septal defect [Unknown]
